FAERS Safety Report 5318669-6 (Version None)
Quarter: 2007Q2

REPORT INFORMATION
  Report Type: 
  Country: None (occurrence: None)
  Receive Date: 20070508
  Receipt Date: 20070426
  Transmission Date: 20071010
  Serious: Yes (Other)
  Sender: FDA-Public Use
  Company Number: US-BAYER-200710767BWH

PATIENT
  Sex: Female

DRUGS (4)
  1. AVELOX [Suspect]
     Indication: SINUSITIS
     Dosage: UNIT DOSE: 400 MG
     Route: 048
     Dates: start: 20070305
  2. AUGMENTIN '125' [Suspect]
     Route: 048
     Dates: start: 20070306
  3. PREDNISONE TAB [Concomitant]
     Dates: start: 20070401
  4. FLONASE [Concomitant]
     Dates: start: 20070401

REACTIONS (9)
  - ANXIETY [None]
  - CHORIORETINOPATHY [None]
  - CRYING [None]
  - DIZZINESS [None]
  - NEUROPATHY PERIPHERAL [None]
  - SYNCOPE [None]
  - TENDONITIS [None]
  - TREMOR [None]
  - VISUAL ACUITY REDUCED [None]
